FAERS Safety Report 4877422-8 (Version None)
Quarter: 2006Q1

REPORT INFORMATION
  Report Type: 
  Country: None (occurrence: None)
  Receive Date: 20060109
  Receipt Date: 20051229
  Transmission Date: 20060701
  Serious: Yes (Death, Hospitalization, Other)
  Sender: FDA-Public Use
  Company Number: 2005172425

PATIENT
  Sex: Female
  Weight: 80.7403 kg

DRUGS (18)
  1. NEURONTIN [Suspect]
     Indication: DIABETIC NEUROPATHY
     Dosage: 1200 MG, ORAL
     Route: 048
     Dates: start: 20000101
  2. PROPAFENONE HCL [Suspect]
     Indication: HYPERTENSION
     Dosage: 225 MG
     Dates: end: 20051001
  3. OXYCONTIN [Concomitant]
  4. CELEBREX [Concomitant]
  5. VITAMIN B12 [Concomitant]
  6. REGLAN [Concomitant]
  7. PREDNISONE [Concomitant]
  8. SYNTHROID [Concomitant]
  9. PREMARIN [Concomitant]
  10. FOLIC ACID [Concomitant]
  11. CATAPRES [Concomitant]
  12. PROTONIX [Concomitant]
  13. XANAX [Concomitant]
  14. BENICAR [Concomitant]
  15. LANTUS [Concomitant]
  16. XOPENEX [Concomitant]
  17. PULMICORT [Concomitant]
  18. CARDIZEM [Concomitant]

REACTIONS (11)
  - ASTHMA [None]
  - CARDIAC FAILURE CHRONIC [None]
  - COMA [None]
  - CONDITION AGGRAVATED [None]
  - DYSPNOEA [None]
  - HEART RATE INCREASED [None]
  - HYPERTENSION [None]
  - PNEUMONIA [None]
  - PNEUMONIA ASPIRATION [None]
  - WEIGHT INCREASED [None]
  - WHEEZING [None]
